FAERS Safety Report 5739708-4 (Version None)
Quarter: 2008Q2

REPORT INFORMATION
  Report Type: 
  Country: None (occurrence: None)
  Receive Date: 20080513
  Receipt Date: 20080501
  Transmission Date: 20081010
  Serious: Yes (Death, Life-Threatening)
  Sender: FDA-Public Use
  Company Number: WAES 0708DEU00022

PATIENT
  Age: 53 Year
  Sex: Male

DRUGS (42)
  1. CANCIDAS [Suspect]
     Indication: SYSTEMIC CANDIDA
     Dosage: 150 MG/DAILY IV
     Route: 042
     Dates: start: 20070806, end: 20070810
  2. CANCIDAS [Concomitant]
  3. ALBUMIN (HUMAN) [Concomitant]
  4. AMINO ACIDS [Concomitant]
  5. AMIODARONE [Concomitant]
  6. BISOPROLOL FUMARATE [Concomitant]
  7. BUTYLSCOPOLAMINE BROMIDE [Concomitant]
  8. CALCIUM [Concomitant]
  9. CHOLECALCIFEROL [Concomitant]
  10. CLARITHROMYCIN [Concomitant]
  11. DIGITOXIN TAB [Concomitant]
  12. DIMENHYDRINATE [Concomitant]
  13. DIPYRONE [Concomitant]
  14. DOBUTAMINE HCL [Concomitant]
  15. EPINEPHRINE [Concomitant]
  16. ETOMINDATE [Concomitant]
  17. FLUCONAZOLE [Concomitant]
  18. FUROSEMIDE [Concomitant]
  19. HEPARIN [Concomitant]
  20. HYDROCORTISONE [Concomitant]
  21. INSULIN [Concomitant]
  22. LACTULOSE [Concomitant]
  23. LEVOFLOXACIN [Concomitant]
  24. MEPERIDINE HCL [Concomitant]
  25. MEROPENEM [Concomitant]
  26. METOCLOPRAMIDE HYDROCHLORIDE [Concomitant]
  27. METRONIDAZOLE HCL [Concomitant]
  28. MIDAZOLAM HCL [Concomitant]
  29. MORPHINESO4 [Concomitant]
  30. NOREPINEPHRINE HYDROCHLORIDE [Concomitant]
  31. PANTOPRAZOLE SODIUM [Concomitant]
  32. PHYTONADIONE [Concomitant]
  33. PIPERACILLIN SODIUM (+) TAZOBACTAM SODIUM [Concomitant]
  34. POLYETHYLENE GLYCOL [Concomitant]
  35. PREDNISONE TAB [Concomitant]
  36. RAMIPRIL [Concomitant]
  37. ROCURONIUM BROMIDE [Concomitant]
  38. SPIRONOLACTONE [Concomitant]
  39. SUFENTANIL CITRATE [Concomitant]
  40. TEMAZEPAM [Concomitant]
  41. TORSEMIDE [Concomitant]
  42. TRAMADOL HCL [Concomitant]

REACTIONS (7)
  - CIRCULATORY COLLAPSE [None]
  - DISEASE PROGRESSION [None]
  - HEPATITIS TOXIC [None]
  - HYPOTENSION [None]
  - INFECTION [None]
  - PANCREATIC PSEUDOCYST [None]
  - SEPTIC SHOCK [None]
